FAERS Safety Report 6258569-0 (Version None)
Quarter: 2009Q3

REPORT INFORMATION
  Report Type: 
  Country: None (occurrence: None)
  Receive Date: 20090707
  Receipt Date: 20090624
  Transmission Date: 20100115
  Serious: Yes (Other)
  Sender: FDA-Public Use
  Company Number: US-ROCHE-640660

PATIENT
  Sex: Female

DRUGS (2)
  1. MYCOPHENOLATE MOFETIL [Suspect]
     Indication: DRUG USE FOR UNKNOWN INDICATION
     Route: 065
     Dates: start: 20090610
  2. MYCOPHENOLATE MOFETIL [Suspect]
     Dosage: RECEIVED FOR 2 OR 3 WEEKS
     Route: 065
     Dates: start: 20090401

REACTIONS (2)
  - DIARRHOEA [None]
  - KNEE ARTHROPLASTY [None]
